FAERS Safety Report 24579791 (Version 2)
Quarter: 2025Q2

REPORT INFORMATION
  Report Type: Spontaneous
  Country: FR (occurrence: FR)
  Receive Date: 20241105
  Receipt Date: 20250602
  Transmission Date: 20250717
  Serious: Yes (Hospitalization)
  Sender: RANBAXY
  Company Number: FR-AFSSAPS-RE2024000901

PATIENT
  Age: 66 Year
  Sex: Male

DRUGS (4)
  1. QUETIAPINE [Suspect]
     Active Substance: QUETIAPINE
     Indication: Delusion
     Dosage: 400 MILLIGRAM, DAILY
     Route: 048
     Dates: start: 20240813
  2. LOXAPINE [Suspect]
     Active Substance: LOXAPINE
     Indication: Delusion
     Dosage: 75 MILLIGRAM, DAILY
     Route: 048
     Dates: start: 202408, end: 20240829
  3. LORAZEPAM [Suspect]
     Active Substance: LORAZEPAM
     Indication: Delusion
     Dosage: 4 MILLIGRAM, DAILY
     Route: 048
     Dates: start: 20240805
  4. DULOXETINE [Suspect]
     Active Substance: DULOXETINE
     Indication: Delusion
     Dosage: 60 MILLIGRAM, DAILY
     Route: 048
     Dates: start: 20240805

REACTIONS (1)
  - Urinary retention [Recovered/Resolved]

NARRATIVE: CASE EVENT DATE: 20240826
